FAERS Safety Report 6338039-1 (Version None)
Quarter: 2009Q3

REPORT INFORMATION
  Report Type: 
  Country: None (occurrence: None)
  Receive Date: 20090902
  Receipt Date: 20090826
  Transmission Date: 20100115
  Serious: Yes (Hospitalization, Other)
  Sender: FDA-Public Use
  Company Number: BG-NAPPMUNDI-GBR-2009-0005452

PATIENT
  Age: 62 Year
  Sex: Male

DRUGS (22)
  1. MORPHINE SULFATE [Suspect]
     Indication: PAIN
     Dosage: 360 MG, DAILY
     Route: 048
  2. MORPHINE SULFATE [Suspect]
     Dosage: 90 MG, TID
     Route: 048
  3. MORPHINE SULFATE [Suspect]
     Dosage: 60 MG, BID
     Route: 048
  4. MORPHINE [Suspect]
     Indication: PAIN
     Dosage: 240 MG, UNK
     Route: 058
  5. MORPHINE [Suspect]
     Dosage: 6X20 MG, DAILY
     Route: 058
  6. MORPHINE [Suspect]
     Dosage: 20 MG, UNK
     Route: 058
  7. MORPHINE [Suspect]
     Dosage: 15 MG, DAILY
     Route: 058
  8. MORPHINE [Suspect]
     Dosage: 30 MG, DAILY
     Route: 058
  9. DOLTARD [Suspect]
     Indication: PAIN
     Dosage: 3X60 MG, DAILY
     Route: 048
  10. CARBAMAZEPINE [Concomitant]
     Indication: EPILEPSY
     Dosage: 800 MG, DAILY
     Route: 065
  11. CARBAMAZEPINE [Concomitant]
     Dosage: 3X200 MG, DAILY
     Route: 065
  12. CARBAMAZEPINE [Concomitant]
     Dosage: 200 MG, DAILY
     Route: 065
  13. METRONIDAZOLE [Concomitant]
     Indication: DRUG USE FOR UNKNOWN INDICATION
     Route: 042
  14. NAPROXEN [Concomitant]
     Indication: PAIN
     Route: 065
  15. METOCLOPRAMIDE [Concomitant]
     Indication: ANTIEMETIC SUPPORTIVE CARE
     Route: 065
  16. SENNA LAXATIVE [Concomitant]
     Indication: LAXATIVE SUPPORTIVE CARE
     Dosage: 3 TABLET, PM
     Route: 065
  17. ANALGIN                            /00039501/ [Concomitant]
     Indication: PAIN MANAGEMENT
     Dosage: 500 MG, QID
     Route: 065
  18. ANALGIN                            /00039501/ [Concomitant]
     Dosage: 3X500 MG, DAILY
     Route: 065
  19. AMITRIPTYLINE [Concomitant]
     Indication: PAIN MANAGEMENT
     Dosage: 25 MG, PM
     Route: 065
  20. LACTULOSE [Concomitant]
     Indication: CONSTIPATION
     Dosage: 30 ML, UNK
     Route: 065
  21. CALYPSOL [Concomitant]
     Indication: PAIN MANAGEMENT
     Dosage: 50 MG, DAILY
     Route: 065
  22. BISALAX [Suspect]
     Indication: LAXATIVE SUPPORTIVE CARE
     Dosage: UNK
     Route: 054

REACTIONS (1)
  - HYPERAESTHESIA [None]
